FAERS Safety Report 19864989 (Version 1)
Quarter: 2021Q3

REPORT INFORMATION
  Report Type: Spontaneous
  Country: GB (occurrence: GB)
  Receive Date: 20210921
  Receipt Date: 20210921
  Transmission Date: 20211014
  Serious: Yes (Other)
  Sender: FDA-Public Use
  Company Number: GB-PFIZER INC-202101196949

PATIENT
  Age: 6 Decade
  Sex: Female

DRUGS (8)
  1. PREDNISOLONE. [Concomitant]
     Active Substance: PREDNISOLONE
     Dosage: 60 MG, DAILY
     Dates: start: 2019
  2. RITUXIMAB. [Concomitant]
     Active Substance: RITUXIMAB
     Indication: GRANULOMATOSIS WITH POLYANGIITIS
     Dosage: TWO DOSES OF 1 G OF RITUXIMAB (RTX) BY I.V. INFUSION 2 WEEKS APART FOR REMISSION INDUCTION
     Route: 042
     Dates: start: 201903
  3. PREDNISOLONE. [Concomitant]
     Active Substance: PREDNISOLONE
     Dosage: 10 MG EVERY 2 WEEKS
  4. PREDNISOLONE. [Concomitant]
     Active Substance: PREDNISOLONE
     Dosage: REDUCING DOSE REGIMEN OF PREDNISOLONE WAS COMMENCED WITH AN INITIAL REDUCTION OF 10MG EVERY 2 WEEKS
     Dates: start: 2019
  5. PREDNISOLONE. [Concomitant]
     Active Substance: PREDNISOLONE
     Dosage: REDUCING DOSE REGIMEN OF PREDNISOLONE WAS COMMENCED WITH AN INITIAL REDUCTION OF 10MG EVERY 2 WEEKS
     Dates: start: 2019
  6. SULFAMETHOXAZOLE/TRIMETHOPRIM [Suspect]
     Active Substance: SULFAMETHOXAZOLE\TRIMETHOPRIM
     Indication: PNEUMOCYSTIS JIROVECII PNEUMONIA
     Dosage: UNK
     Dates: start: 2019, end: 2019
  7. PREDNISOLONE. [Concomitant]
     Active Substance: PREDNISOLONE
     Indication: GRANULOMATOSIS WITH POLYANGIITIS
     Dosage: REDUCING DOSE REGIMEN OF PREDNISOLONE WAS COMMENCED WITH AN INITIAL REDUCTION OF 10MG EVERY 2 WEEKS
     Dates: start: 2019
  8. PREDNISOLONE. [Concomitant]
     Active Substance: PREDNISOLONE
     Dosage: REDUCING DOSE REGIMEN OF PREDNISOLONE WAS COMMENCED WITH AN INITIAL REDUCTION OF 10MG EVERY 2 WEEKS
     Dates: start: 2019

REACTIONS (4)
  - Vomiting [Recovered/Resolved]
  - Oliguria [Recovered/Resolved]
  - Toxicity to various agents [Recovering/Resolving]
  - Acute kidney injury [Recovering/Resolving]

NARRATIVE: CASE EVENT DATE: 2019
